FAERS Safety Report 5379610-3 (Version None)
Quarter: 2007Q2

REPORT INFORMATION
  Report Type: 
  Country: None (occurrence: None)
  Receive Date: 20070530
  Receipt Date: 20070306
  Transmission Date: 20071010
  Serious: No
  Sender: FDA-Public Use
  Company Number: 2007PV031229

PATIENT
  Age: 73 Year
  Sex: Female

DRUGS (7)
  1. BYETTA [Suspect]
     Indication: DIABETES MELLITUS NON-INSULIN-DEPENDENT
     Dosage: 10 MCG/BID/SC, 5 MCG;BID;SC
     Route: 058
     Dates: start: 20070201, end: 20070301
  2. BYETTA [Suspect]
     Indication: DIABETES MELLITUS NON-INSULIN-DEPENDENT
     Dosage: 10 MCG/BID/SC, 5 MCG;BID;SC
     Route: 058
     Dates: start: 20070302
  3. LANTUS [Concomitant]
  4. ACTOS [Concomitant]
  5. METFORMIN HCL [Concomitant]
  6. GLUCOTROL [Concomitant]
  7. LANTUS [Concomitant]

REACTIONS (4)
  - BLOOD GLUCOSE DECREASED [None]
  - FEELING JITTERY [None]
  - HYPERHIDROSIS [None]
  - VISION BLURRED [None]
